FAERS Safety Report 12204710 (Version 5)
Quarter: 2016Q2

REPORT INFORMATION
  Report Type: Spontaneous
  Country: US (occurrence: US)
  Receive Date: 20160323
  Receipt Date: 20160511
  Transmission Date: 20160815
  Serious: Yes (Hospitalization)
  Sender: FDA-Public Use
  Company Number: US-JNJFOC-20160315945

PATIENT
  Sex: Male
  Weight: 110.22 kg

DRUGS (12)
  1. RISPERDAL CONSTA [Suspect]
     Active Substance: RISPERIDONE
     Indication: HOMICIDAL IDEATION
     Route: 030
     Dates: start: 20150618
  2. RISPERDAL CONSTA [Suspect]
     Active Substance: RISPERIDONE
     Indication: HOMICIDAL IDEATION
     Route: 030
     Dates: start: 2006, end: 2007
  3. RISPERDAL [Suspect]
     Active Substance: RISPERIDONE
     Indication: DELUSION
     Route: 048
     Dates: start: 201506, end: 20151214
  4. HALDOL [Suspect]
     Active Substance: HALOPERIDOL
     Indication: BIPOLAR DISORDER
     Route: 065
  5. HALDOL [Suspect]
     Active Substance: HALOPERIDOL
     Indication: SCHIZOPHRENIA
     Route: 065
  6. RISPERDAL CONSTA [Suspect]
     Active Substance: RISPERIDONE
     Indication: PYROMANIA
     Route: 030
     Dates: start: 20150618
  7. RISPERDAL [Suspect]
     Active Substance: RISPERIDONE
     Indication: PYROMANIA
     Route: 048
     Dates: start: 201506, end: 20151214
  8. RISPERDAL CONSTA [Suspect]
     Active Substance: RISPERIDONE
     Indication: BIPOLAR DISORDER
     Route: 030
     Dates: start: 20150618
  9. RISPERDAL CONSTA [Suspect]
     Active Substance: RISPERIDONE
     Indication: BIPOLAR DISORDER
     Route: 030
     Dates: start: 2006, end: 2007
  10. RISPERDAL CONSTA [Suspect]
     Active Substance: RISPERIDONE
     Indication: SCHIZOPHRENIA
     Route: 030
     Dates: start: 2006, end: 2007
  11. RISPERDAL CONSTA [Suspect]
     Active Substance: RISPERIDONE
     Indication: PYROMANIA
     Route: 030
     Dates: start: 2006, end: 2007
  12. RISPERDAL CONSTA [Suspect]
     Active Substance: RISPERIDONE
     Indication: SCHIZOPHRENIA
     Route: 030
     Dates: start: 20150618

REACTIONS (8)
  - Adverse event [Unknown]
  - Injection site pain [Unknown]
  - Pregnancy of partner [Unknown]
  - Hospitalisation [Unknown]
  - Weight increased [Not Recovered/Not Resolved]
  - Headache [Not Recovered/Not Resolved]
  - Somnolence [Unknown]
  - Vision blurred [Not Recovered/Not Resolved]

NARRATIVE: CASE EVENT DATE: 2006
